FAERS Safety Report 9878525 (Version 2)
Quarter: 2014Q1

REPORT INFORMATION
  Report Type: Spontaneous
  Country: US (occurrence: US)
  Receive Date: 20140206
  Receipt Date: 20140206
  Transmission Date: 20141002
  Serious: No
  Sender: FDA-Public Use
  Company Number: US-ALLERGAN-1312398US

PATIENT
  Sex: Female

DRUGS (6)
  1. BOTOX [Suspect]
     Indication: MIGRAINE
     Dosage: 155 UNITS, SINGLE
     Dates: start: 20130627, end: 20130627
  2. TOPAMAX [Concomitant]
     Indication: PRODUCT USED FOR UNKNOWN INDICATION
  3. PHENERGAN                          /00033001/ [Concomitant]
     Indication: PRODUCT USED FOR UNKNOWN INDICATION
  4. RELPAX [Concomitant]
     Indication: PRODUCT USED FOR UNKNOWN INDICATION
  5. VITAMINS                           /00067501/ [Concomitant]
     Indication: PRODUCT USED FOR UNKNOWN INDICATION
  6. BIRTH CONTROL [Concomitant]
     Indication: PRODUCT USED FOR UNKNOWN INDICATION

REACTIONS (1)
  - Dysphagia [Recovered/Resolved]
